FAERS Safety Report 5141054-7 (Version None)
Quarter: 2006Q4

REPORT INFORMATION
  Report Type: 
  Country: None (occurrence: None)
  Receive Date: 20061026
  Receipt Date: 20061017
  Transmission Date: 20070319
  Serious: Yes (Other)
  Sender: FDA-Public Use
  Company Number: 2006110411

PATIENT
  Sex: 0

DRUGS (2)
  1. PREGABALIN (PREGABALIN) [Suspect]
     Dosage: 150 MG (75 MG, 2 IN 1 D), ORAL
     Route: 048
  2. TRAMADOL HCL [Suspect]

REACTIONS (4)
  - DRUG INTERACTION [None]
  - GENERAL PHYSICAL HEALTH DETERIORATION [None]
  - INCORRECT DOSE ADMINISTERED [None]
  - SEROTONIN SYNDROME [None]
